FAERS Safety Report 9548162 (Version 1)
Quarter: 2013Q3

REPORT INFORMATION
  Report Type: Spontaneous
  Country: US (occurrence: None)
  Receive Date: 20130710
  Receipt Date: 20130710
  Transmission Date: 20140515
  Serious: Yes (Other)
  Sender: FDA-Public Use
  Company Number: SYM-2013-02489

PATIENT
  Sex: Female

DRUGS (2)
  1. SOLODYN [Suspect]
     Indication: PRODUCT USED FOR UNKNOWN INDICATION
     Route: 048
  2. BIRTH CONTRL PILLS (OTHER THERAPEUTIC PRODUCTS) (NULL) [Concomitant]

REACTIONS (1)
  - Pregnancy on oral contraceptive [None]
